FAERS Safety Report 8003062-8 (Version None)
Quarter: 2011Q4

REPORT INFORMATION
  Report Type: 
  Country: None (occurrence: None)
  Receive Date: 20111222
  Receipt Date: 20111215
  Transmission Date: 20120403
  Serious: Yes (Disabling, Other)
  Sender: FDA-Public Use
  Company Number: GB-ABBOTT-11P-167-0876757-00

PATIENT
  Sex: Male

DRUGS (3)
  1. ACETAMINOPHEN AND CODEINE PHOSPHATE [Concomitant]
     Indication: PRODUCT USED FOR UNKNOWN INDICATION
     Dosage: 30/500 AS REQUIRED
     Route: 048
     Dates: start: 20060101
  2. HUMIRA [Suspect]
     Indication: PSORIATIC ARTHROPATHY
     Dosage: ONCE EVERY TWO WEEKS (FORTNIGHTLY)
     Route: 058
     Dates: start: 20091211
  3. METHOTREXATE [Concomitant]
     Indication: PSORIATIC ARTHROPATHY
     Dosage: ONCE WEEKLY
     Route: 048
     Dates: start: 20060101, end: 20110601

REACTIONS (2)
  - IMPAIRED WORK ABILITY [None]
  - NEUROPATHY PERIPHERAL [None]
